FAERS Safety Report 15900087 (Version 1)
Quarter: 2019Q1

REPORT INFORMATION
  Report Type: Report from Study
  Country: IT (occurrence: IT)
  Receive Date: 20190201
  Receipt Date: 20190201
  Transmission Date: 20190417
  Serious: Yes (Other)
  Sender: FDA-Public Use
  Company Number: IT-BAYER-2019-023853

PATIENT
  Age: 72 Year
  Sex: Male

DRUGS (3)
  1. AULIN [Suspect]
     Active Substance: NIMESULIDE
     Indication: PAIN
     Dosage: 2 DF, UNK
     Route: 048
     Dates: start: 20181022, end: 20181022
  2. ACETYLSALICYLIC ACID [Suspect]
     Active Substance: ASPIRIN
     Dosage: 1 DF, QD
     Route: 048
  3. OKI [Suspect]
     Active Substance: KETOPROFEN LYSINE
     Indication: PAIN
     Dosage: 2 DF, UNK
     Route: 048
     Dates: start: 20181022, end: 20181022

REACTIONS (3)
  - Melaena [Unknown]
  - Gastric ulcer [Unknown]
  - Gastritis erosive [Unknown]

NARRATIVE: CASE EVENT DATE: 20181023
